FAERS Safety Report 24446663 (Version 1)
Quarter: 2024Q4

REPORT INFORMATION
  Report Type: Spontaneous
  Country: RU (occurrence: RU)
  Receive Date: 20241016
  Receipt Date: 20241016
  Transmission Date: 20250115
  Serious: Yes (Hospitalization, Other)
  Sender: GLAXOSMITHKLINE
  Company Number: RU-GSK-RU2024EME125831

PATIENT

DRUGS (20)
  1. LAMIVUDINE [Interacting]
     Active Substance: LAMIVUDINE
     Indication: HIV infection
     Dosage: UNK
     Dates: start: 2012
  2. ZIDOVUDINE [Suspect]
     Active Substance: ZIDOVUDINE
     Indication: HIV infection
     Dosage: UNK
     Dates: start: 2012
  3. LAMIVUDINE AND ZIDOVUDINE [Suspect]
     Active Substance: LAMIVUDINE\ZIDOVUDINE
     Indication: HIV infection
     Dosage: UNK
     Dates: start: 20181221, end: 20200205
  4. DOLUTEGRAVIR [Interacting]
     Active Substance: DOLUTEGRAVIR
     Indication: HIV infection
     Dosage: UNK
     Dates: start: 20200619, end: 20220211
  5. RITONAVIR [Suspect]
     Active Substance: RITONAVIR
     Indication: HIV infection
     Dosage: UNK
     Dates: start: 2012, end: 20240523
  6. SAQUINAVIR [Suspect]
     Active Substance: SAQUINAVIR
     Indication: HIV infection
     Dosage: UNK
     Dates: start: 20240418, end: 20240523
  7. TENOFOVIR DISOPROXIL FUMARATE [Suspect]
     Active Substance: TENOFOVIR DISOPROXIL FUMARATE
     Indication: HIV infection
     Dosage: UNK
     Dates: start: 20181212
  8. DARUNAVIR [Suspect]
     Active Substance: DARUNAVIR
     Indication: HIV infection
     Dosage: UNK
     Dates: start: 2012
  9. RALTEGRAVIR [Suspect]
     Active Substance: RALTEGRAVIR
     Indication: HIV infection
     Dosage: UNK
     Dates: start: 2017
  10. DARUNAVIR\RITONAVIR [Suspect]
     Active Substance: DARUNAVIR\RITONAVIR
     Indication: HIV infection
     Dosage: UNK
  11. EFAVIRENZ [Suspect]
     Active Substance: EFAVIRENZ
     Indication: HIV infection
     Dosage: UNK
     Dates: start: 20181212
  12. ELSULFAVIRINE [Interacting]
     Active Substance: ELSULFAVIRINE
     Indication: HIV infection
     Dosage: UNK
     Dates: start: 20190606, end: 20200619
  13. PHOSPHAZIDE [Interacting]
     Active Substance: PHOSPHAZIDE
     Indication: HIV infection
     Dosage: UNK
     Dates: start: 20200205, end: 20200619
  14. NEBIVOLOL [Concomitant]
     Active Substance: NEBIVOLOL
     Indication: Product used for unknown indication
     Dosage: UNK
  15. FOSINOPRIL [Concomitant]
     Active Substance: FOSINOPRIL
     Indication: Product used for unknown indication
     Dosage: UNK
  16. FABOMOTIZOLE [Concomitant]
     Indication: Product used for unknown indication
     Dosage: UNK
  17. GLYCINE [Concomitant]
     Active Substance: GLYCINE
     Indication: Product used for unknown indication
     Dosage: UNK
  18. BETAHISTINE [Concomitant]
     Active Substance: BETAHISTINE
     Indication: Product used for unknown indication
     Dosage: UNK
  19. SULFAMETHOXAZOLE AND TRIMETHOPRIM [Concomitant]
     Active Substance: SULFAMETHOXAZOLE\TRIMETHOPRIM
     Indication: Opportunistic infection prophylaxis
     Dosage: UNK, INTERMITTENTLY
  20. COBICISTAT\ELVITEGRAVIR\EMTRICITABINE\TENOFOVIR DISOPROXIL FUMARATE [Concomitant]
     Active Substance: COBICISTAT\ELVITEGRAVIR\EMTRICITABINE\TENOFOVIR DISOPROXIL FUMARATE
     Indication: HIV infection
     Dosage: UNK
     Dates: start: 20220211, end: 20240418

REACTIONS (51)
  - HIV infection [Unknown]
  - Candida infection [Unknown]
  - Carotid arteriosclerosis [Unknown]
  - Retinopathy hypertensive [Unknown]
  - Osteochondrosis [Unknown]
  - Hepatitis toxic [Unknown]
  - Aortic arteriosclerosis [Unknown]
  - Electrocardiogram repolarisation abnormality [Unknown]
  - Hepatitis C [Unknown]
  - Psoriatic arthropathy [Unknown]
  - Immunosuppression [Unknown]
  - Pathogen resistance [Unknown]
  - Respiratory tract infection [Unknown]
  - Diarrhoea [Unknown]
  - Drug intolerance [Unknown]
  - Blood HIV RNA increased [Unknown]
  - Hypertension [Unknown]
  - Vertebrobasilar insufficiency [Unknown]
  - Asthenia [Unknown]
  - Disease recurrence [Unknown]
  - Burning sensation [Unknown]
  - General physical health deterioration [Unknown]
  - Arthralgia [Unknown]
  - Dry mouth [Unknown]
  - Penile swelling [Unknown]
  - Penile plaque [Unknown]
  - Balanoposthitis [Unknown]
  - Dysuria [Unknown]
  - Weight decreased [Unknown]
  - Skin papilloma [Unknown]
  - Oropharyngeal plaque [Unknown]
  - Hyperaemia [Unknown]
  - Infection reactivation [Unknown]
  - Viral mutation identified [Unknown]
  - Synovitis [Unknown]
  - Oral candidiasis [Unknown]
  - Acrochordon [Unknown]
  - Condition aggravated [Unknown]
  - Foot deformity [Unknown]
  - Hepatic steatosis [Unknown]
  - Exostosis [Unknown]
  - Bone lesion [Unknown]
  - Lymphadenopathy [Unknown]
  - Drug interaction [Unknown]
  - Arthritis [Unknown]
  - Psoriasis [Unknown]
  - Hepatomegaly [Unknown]
  - Aortic valve sclerosis [Unknown]
  - Mitral valve sclerosis [Unknown]
  - Pancreatic disorder [Unknown]
  - Drug ineffective [Unknown]

NARRATIVE: CASE EVENT DATE: 20190117
